FAERS Safety Report 22338071 (Version 8)
Quarter: 2025Q4

REPORT INFORMATION
  Report Type: Spontaneous
  Country: US (occurrence: US)
  Receive Date: 20230518
  Receipt Date: 20251212
  Transmission Date: 20260117
  Serious: No
  Sender: SANOFI AVENTIS
  Company Number: US-SA-SAC20230515001445

PATIENT
  Age: 45 Year
  Sex: Female

DRUGS (2)
  1. DUPIXENT [Suspect]
     Active Substance: DUPILUMAB
     Indication: Asthma
     Dosage: 300 MG, QOW
     Route: 058
     Dates: start: 202210
  2. DROXIDOPA [Concomitant]
     Active Substance: DROXIDOPA
     Dosage: UNK

REACTIONS (13)
  - Visual impairment [Unknown]
  - Concussion [Unknown]
  - Injection site haemorrhage [Recovered/Resolved]
  - Incorrect route of product administration [Recovered/Resolved]
  - Tremor [Unknown]
  - Cognitive disorder [Unknown]
  - Dizziness [Unknown]
  - Condition aggravated [Unknown]
  - Vertigo [Unknown]
  - Vision blurred [Recovering/Resolving]
  - Dry eye [Unknown]
  - Conjunctivitis [Unknown]
  - Asthma [Unknown]

NARRATIVE: CASE EVENT DATE: 20230101
